FAERS Safety Report 4580889-6 (Version None)
Quarter: 2005Q1

REPORT INFORMATION
  Report Type: 
  Country: None (occurrence: None)
  Receive Date: 20050127
  Receipt Date: 20041115
  Transmission Date: 20050727
  Serious: No
  Sender: FDA-Public Use
  Company Number: US_0411108471

PATIENT
  Age: 57 Year
  Sex: Female

DRUGS (5)
  1. STRATTERA [Suspect]
     Indication: ATTENTION DEFICIT/HYPERACTIVITY DISORDER
     Dosage: 40 MG DAY
     Dates: start: 20041115
  2. PAXIL [Concomitant]
  3. PREMPRO [Concomitant]
  4. SYNTHROID [Concomitant]
  5. CELEBREX [Concomitant]

REACTIONS (5)
  - DRUG INEFFECTIVE [None]
  - EXCITABILITY [None]
  - FEELING ABNORMAL [None]
  - MANIA [None]
  - SOMNOLENCE [None]
